FAERS Safety Report 19225787 (Version 2)
Quarter: 2021Q2

REPORT INFORMATION
  Report Type: Spontaneous
  Country: US (occurrence: US)
  Receive Date: 20210505
  Receipt Date: 20210514
  Transmission Date: 20210717
  Serious: Yes (Hospitalization, Other)
  Sender: FDA-Public Use
  Company Number: US-LUPIN PHARMACEUTICALS INC.-2021-06094

PATIENT
  Age: 14 Year
  Sex: Female

DRUGS (6)
  1. REMDESIVIR. [Concomitant]
     Active Substance: REMDESIVIR
     Indication: INFLAMMATION
     Dosage: UNK
     Route: 065
  2. INSULIN [Concomitant]
     Active Substance: INSULIN NOS
     Indication: RESUSCITATION
     Dosage: UNK
     Route: 065
  3. IMMUNOGLOBULIN G HUMAN [Concomitant]
     Active Substance: HUMAN IMMUNOGLOBULIN G
     Indication: INFLAMMATION
     Dosage: UNK
     Route: 065
  4. EPINEPHRINE HYDROCHLORIDE. [Concomitant]
     Active Substance: EPINEPHRINE HYDROCHLORIDE
     Indication: DISTRIBUTIVE SHOCK
     Dosage: INOTROPIC SUPPORT
     Route: 065
  5. NOREPINEPHRINE. [Concomitant]
     Active Substance: NOREPINEPHRINE
     Indication: DISTRIBUTIVE SHOCK
     Dosage: INOTROPIC SUPPORT
     Route: 065
  6. METHYLPREDNISOLONE. [Suspect]
     Active Substance: METHYLPREDNISOLONE
     Indication: INFLAMMATION
     Dosage: UNK
     Route: 065

REACTIONS (3)
  - Rebound effect [Recovered/Resolved]
  - Condition aggravated [Recovered/Resolved]
  - Renal impairment [Recovered/Resolved]
